FAERS Safety Report 9385797 (Version 11)
Quarter: 2014Q1

REPORT INFORMATION
  Report Type: Spontaneous
  Country: GB (occurrence: GB)
  Receive Date: 20130705
  Receipt Date: 20140211
  Transmission Date: 20141002
  Serious: Yes (Hospitalization, Other)
  Sender: FDA-Public Use
  Company Number: PHFR2013GB003814

PATIENT
  Age: 47 Year
  Sex: Female

DRUGS (4)
  1. CLOZARIL [Suspect]
     Indication: SCHIZOPHRENIA
     Dosage: UNK
     Route: 048
     Dates: start: 20050309
  2. METOCLOPRAMIDE [Concomitant]
     Indication: NAUSEA
     Dosage: 10 MG, TID
     Route: 048
     Dates: start: 20130711, end: 201308
  3. FERROUS SULPHATE [Concomitant]
     Indication: IRON DEFICIENCY
     Dosage: 200 MG, BID
     Route: 048
     Dates: start: 20130711
  4. RITUXIMAB [Concomitant]
     Dosage: EVERY 2 MONTHS

REACTIONS (6)
  - Non-Hodgkin^s lymphoma [Recovering/Resolving]
  - Parotid gland enlargement [Unknown]
  - Renal failure chronic [Not Recovered/Not Resolved]
  - Neutrophil count increased [Recovered/Resolved]
  - White blood cell count decreased [Recovered/Resolved]
  - Neutrophil count decreased [Recovered/Resolved]
